FAERS Safety Report 9998891 (Version 1)
Quarter: 2014Q1

REPORT INFORMATION
  Report Type: Report from Study
  Country: US (occurrence: US)
  Receive Date: 20140312
  Receipt Date: 20140312
  Transmission Date: 20141002
  Serious: Yes (Hospitalization)
  Sender: FDA-Public Use
  Company Number: US-ROCHE-1363825

PATIENT
  Age: 60 Year
  Sex: Female

DRUGS (3)
  1. PEGASYS [Suspect]
     Indication: HEPATITIS C
     Dosage: PROCLICK AUTOINJECTOR
     Route: 058
     Dates: start: 20140207
  2. SOVALDI [Suspect]
     Indication: HEPATITIS C
     Route: 065
  3. RIBAPAK [Suspect]
     Indication: HEPATITIS C
     Dosage: DIVIDED DOSES 400/600
     Route: 048
     Dates: start: 20140207

REACTIONS (3)
  - Pneumonia [Unknown]
  - Full blood count decreased [Unknown]
  - Hypotension [Unknown]
